FAERS Safety Report 12700824 (Version 1)
Quarter: 2016Q3

REPORT INFORMATION
  Report Type: Spontaneous
  Country: None (occurrence: US)
  Receive Date: 20160830
  Receipt Date: 20160830
  Transmission Date: 20161109
  Serious: Yes (Other)
  Sender: FDA-Public Use
  Company Number: US-TEVA-689144USA

PATIENT
  Age: 27 Year
  Sex: Male

DRUGS (1)
  1. GALZIN [Suspect]
     Active Substance: ZINC ACETATE
     Indication: HEPATO-LENTICULAR DEGENERATION
     Route: 065

REACTIONS (3)
  - Anaemia [Unknown]
  - Copper deficiency [Unknown]
  - Leukopenia [Unknown]
